FAERS Safety Report 8085072-8 (Version None)
Quarter: 2012Q1

REPORT INFORMATION
  Report Type: 
  Country: None (occurrence: None)
  Receive Date: 20120128
  Receipt Date: 20110318
  Transmission Date: 20120608
  Serious: No
  Sender: FDA-Public Use
  Company Number: US-ABBOTT-11P-163-0713102-00

PATIENT
  Sex: Male
  Weight: 106.69 kg

DRUGS (2)
  1. INDOMETHACIN [Concomitant]
     Indication: RHEUMATOID ARTHRITIS
     Dosage: PRN
  2. HUMIRA [Suspect]
     Indication: RHEUMATOID ARTHRITIS
     Dates: start: 20100501

REACTIONS (3)
  - DRUG ADMINISTRATION ERROR [None]
  - LIMB DISCOMFORT [None]
  - MEDICATION ERROR [None]
